FAERS Safety Report 11142707 (Version 2)
Quarter: 2015Q3

REPORT INFORMATION
  Report Type: Spontaneous
  Country: US (occurrence: US)
  Receive Date: 20150527
  Receipt Date: 20150721
  Transmission Date: 20151125
  Serious: Yes (Other)
  Sender: FDA-Public Use
  Company Number: US-ALLERGAN-1422661US

PATIENT
  Age: 67 Year
  Sex: Male

DRUGS (6)
  1. SITAGLIPTIN METFORMIN [Concomitant]
     Active Substance: METFORMIN HYDROCHLORIDE\SITAGLIPTIN PHOSPHATE
  2. ATORVASTATIN [Concomitant]
     Active Substance: ATORVASTATIN
  3. OLMESARTAN [Concomitant]
     Active Substance: OLMESARTAN
  4. OZURDEX [Suspect]
     Active Substance: DEXAMETHASONE
     Indication: DIABETIC RETINAL OEDEMA
     Dosage: 0.7 MG, UNK
     Route: 031
     Dates: start: 20141023, end: 20141023
  5. FERROUS SULFATE [Concomitant]
     Active Substance: FERROUS SULFATE\FERROUS SULFATE, DRIED
  6. GLIMEPIRIDE. [Concomitant]
     Active Substance: GLIMEPIRIDE

REACTIONS (4)
  - Endophthalmitis [Not Recovered/Not Resolved]
  - Retinal detachment [Unknown]
  - Visual acuity reduced [Unknown]
  - Iris adhesions [Unknown]

NARRATIVE: CASE EVENT DATE: 20141025
